FAERS Safety Report 9210616 (Version 3)
Quarter: 2013Q2

REPORT INFORMATION
  Report Type: Spontaneous
  Country: US (occurrence: US)
  Receive Date: 20130404
  Receipt Date: 20130521
  Transmission Date: 20140414
  Serious: No
  Sender: FDA-Public Use
  Company Number: US-PFIZER INC-2013106171

PATIENT
  Age: 30 Year
  Sex: Female
  Weight: 52.2 kg

DRUGS (9)
  1. LYRICA [Suspect]
     Indication: FIBROMYALGIA
     Dosage: 100 MG, 2X/DAY
     Route: 048
     Dates: start: 2012
  2. ALBUTEROL SULFATE HFA [Concomitant]
     Dosage: UNK, (108 MCG/ACT)
  3. FLEXERIL [Concomitant]
     Dosage: 10 MG, 2X/DAY
     Route: 048
  4. FLONASE [Concomitant]
     Dosage: UNK
  5. HALCION [Concomitant]
     Dosage: 0.25 MG, 1X/DAY
     Route: 048
  6. MICRO-K [Concomitant]
     Dosage: 10 MEQ, 1X/DAY
     Route: 048
  7. PROZAC [Concomitant]
     Dosage: 40 MG, 1X/DAY
     Route: 048
  8. SUMATRIPTAN SUCCINATE [Concomitant]
     Dosage: 100 MG, AS NEEDED
     Route: 048
  9. XYZAL [Concomitant]
     Dosage: 5 MG, 1X/DAY

REACTIONS (3)
  - Oedema peripheral [Unknown]
  - Fatigue [Unknown]
  - Weight increased [Unknown]
